FAERS Safety Report 6792551-X (Version None)
Quarter: 2010Q2

REPORT INFORMATION
  Report Type: 
  Country: None (occurrence: None)
  Receive Date: 20100624
  Receipt Date: 20080814
  Transmission Date: 20101027
  Serious: No
  Sender: FDA-Public Use
  Company Number: US-PFIZER INC-2008068559

PATIENT
  Sex: Female
  Weight: 56.8 kg

DRUGS (1)
  1. GEODON [Suspect]
     Indication: DEPRESSION

REACTIONS (3)
  - DRY SKIN [None]
  - SKIN DISORDER [None]
  - SKIN EXFOLIATION [None]
